FAERS Safety Report 24262688 (Version 1)
Quarter: 2024Q3

REPORT INFORMATION
  Report Type: Spontaneous
  Country: CN (occurrence: CN)
  Receive Date: 20240829
  Receipt Date: 20240829
  Transmission Date: 20241016
  Serious: Yes (Other)
  Sender: MYLAN
  Company Number: CN-MYLANLABS-2023M1110715

PATIENT
  Age: 52 Year
  Sex: Female

DRUGS (6)
  1. CELEBREX [Suspect]
     Active Substance: CELECOXIB
     Indication: Back pain
     Dosage: 1 DOSAGE FORM, BID
     Route: 048
     Dates: start: 20230814, end: 20230821
  2. CELEBREX [Suspect]
     Active Substance: CELECOXIB
     Indication: Pain in extremity
  3. LYRICA [Suspect]
     Active Substance: PREGABALIN
     Indication: Back pain
     Dosage: 1 DOSAGE FORM, BID
     Route: 048
     Dates: start: 20230814, end: 20230821
  4. LYRICA [Suspect]
     Active Substance: PREGABALIN
     Indication: Pain in extremity
  5. METHYLCOBALAMIN [Suspect]
     Active Substance: METHYLCOBALAMIN
     Indication: Back pain
     Dosage: 1 DOSAGE FORM, TID
     Route: 048
     Dates: start: 20230814, end: 20230821
  6. METHYLCOBALAMIN [Suspect]
     Active Substance: METHYLCOBALAMIN
     Indication: Pain in extremity

REACTIONS (1)
  - Dermatitis allergic [Recovering/Resolving]

NARRATIVE: CASE EVENT DATE: 20230824
